FAERS Safety Report 24982631 (Version 1)
Quarter: 2025Q1

REPORT INFORMATION
  Report Type: Spontaneous
  Country: FR (occurrence: FR)
  Receive Date: 20250218
  Receipt Date: 20250218
  Transmission Date: 20250409
  Serious: Yes (Hospitalization)
  Sender: ELI LILLY AND COMPANY
  Company Number: None

PATIENT
  Age: 68 Year
  Sex: Male
  Weight: 80 kg

DRUGS (1)
  1. TALTZ [Suspect]
     Active Substance: IXEKIZUMAB
     Indication: Psoriasis
     Dosage: 1 INJECTION TOUS LES 19 DU MOIS
     Route: 058
     Dates: end: 202501

REACTIONS (2)
  - Listeriosis [Recovering/Resolving]
  - Infective aortitis [Recovering/Resolving]

NARRATIVE: CASE EVENT DATE: 20241201
